FAERS Safety Report 12304603 (Version 1)
Quarter: 2016Q2

REPORT INFORMATION
  Report Type: Spontaneous
  Country: US (occurrence: None)
  Receive Date: 20160425
  Receipt Date: 20160425
  Transmission Date: 20160815
  Serious: Yes (Other)
  Sender: FDA-Public Use
  Company Number: None

PATIENT
  Age: 86 Year
  Sex: Female
  Weight: 54.43 kg

DRUGS (7)
  1. LARASARTIN [Concomitant]
  2. MVI [Concomitant]
     Active Substance: VITAMINS
  3. AMALODAPINE [Concomitant]
  4. CALCIUM [Concomitant]
     Active Substance: CALCIUM
  5. VITAMIN D [Concomitant]
     Active Substance: CHOLECALCIFEROL
  6. LEVOTHYROXINE. [Concomitant]
     Active Substance: LEVOTHYROXINE
  7. RECLAST [Suspect]
     Active Substance: ZOLEDRONIC ACID
     Indication: OSTEOPOROSIS
     Route: 042
     Dates: start: 20160119, end: 20160119

REACTIONS (6)
  - Urethritis noninfective [None]
  - Cystitis noninfective [None]
  - General physical health deterioration [None]
  - Quality of life decreased [None]
  - Urinary tract infection [None]
  - Poor quality sleep [None]

NARRATIVE: CASE EVENT DATE: 20160119
